FAERS Safety Report 4810232-6 (Version None)
Quarter: 2005Q4

REPORT INFORMATION
  Report Type: 
  Country: None (occurrence: None)
  Receive Date: 20051026
  Receipt Date: 20051024
  Transmission Date: 20060501
  Serious: Yes (Other)
  Sender: FDA-Public Use
  Company Number: US-GLAXOSMITHKLINE-A0579405A

PATIENT
  Age: 61 Year
  Sex: Male

DRUGS (2)
  1. LAMICTAL [Suspect]
     Indication: CONVULSION
     Dosage: 200MG TWICE PER DAY
     Route: 048
  2. ATENOLOL [Concomitant]

REACTIONS (2)
  - BLOOD CREATINE PHOSPHOKINASE INCREASED [None]
  - BLOOD CREATININE INCREASED [None]
